FAERS Safety Report 14636669 (Version 1)
Quarter: 2018Q1

REPORT INFORMATION
  Report Type: Spontaneous
  Country: FR (occurrence: FR)
  Receive Date: 20180314
  Receipt Date: 20180314
  Transmission Date: 20180509
  Serious: Yes (Hospitalization)
  Sender: FDA-Public Use
  Company Number: FR-TEVA-2018-FR-867617

PATIENT
  Age: 79 Year
  Sex: Female
  Weight: 53 kg

DRUGS (3)
  1. AZILECT [Suspect]
     Active Substance: RASAGILINE MESYLATE
     Indication: PARKINSON^S DISEASE
     Route: 048
  2. MODOPAR L.P. 125 100 MG/25 MG, PROLONGED-RELEASE CAPSULE [Interacting]
     Active Substance: BENSERAZIDE HYDROCHLORIDE\LEVODOPA
     Indication: PARKINSON^S DISEASE
     Route: 048
  3. MODOPAR [Interacting]
     Active Substance: BENSERAZIDE HYDROCHLORIDE\LEVODOPA
     Indication: PARKINSON^S DISEASE
     Route: 048

REACTIONS (4)
  - Drug interaction [Unknown]
  - Rhabdomyolysis [Recovering/Resolving]
  - Orthostatic hypotension [Not Recovered/Not Resolved]
  - Fall [Recovered/Resolved]
